FAERS Safety Report 21725907 (Version 1)
Quarter: 2022Q4

REPORT INFORMATION
  Report Type: Report from Study
  Country: CA (occurrence: CA)
  Receive Date: 20221214
  Receipt Date: 20221214
  Transmission Date: 20230112
  Serious: Yes (Hospitalization)
  Sender: FDA-Public Use
  Company Number: CA-JNJFOC-20221021528

PATIENT
  Age: 60 Year
  Sex: Female
  Weight: 53 kg

DRUGS (1)
  1. REMICADE [Suspect]
     Active Substance: INFLIXIMAB
     Indication: Crohn^s disease
     Dosage: THE PATIENT TOOK DOSE ON 11-OCT-2022
     Route: 042
     Dates: start: 20220819

REACTIONS (3)
  - Nephrolithiasis [Recovering/Resolving]
  - Cholecystectomy [Recovering/Resolving]
  - Proctectomy [Recovering/Resolving]

NARRATIVE: CASE EVENT DATE: 20220914
